FAERS Safety Report 16465318 (Version 2)
Quarter: 2019Q3

REPORT INFORMATION
  Report Type: Spontaneous
  Country: US (occurrence: US)
  Receive Date: 20190621
  Receipt Date: 20190731
  Transmission Date: 20191004
  Serious: Yes (Other)
  Sender: FDA-Public Use
  Company Number: US-PFIZER INC-2019260735

PATIENT
  Age: 85 Year
  Sex: Female
  Weight: 68.4 kg

DRUGS (3)
  1. DETROL [Suspect]
     Active Substance: TOLTERODINE TARTRATE
     Indication: BLADDER DISORDER
     Dosage: 200 MG, 2X/DAY
     Dates: start: 2009, end: 201812
  2. LEVOTHYROXINE. [Concomitant]
     Active Substance: LEVOTHYROXINE
     Indication: HYPOTHYROIDISM
     Dosage: UNK
     Dates: start: 1962, end: 20190525
  3. DETROL [Suspect]
     Active Substance: TOLTERODINE TARTRATE
     Dosage: 200 MG, DAILY, (STARTED TAKING 1 DAILY INSTEAD OF 2 A DAY)
     Dates: start: 201812, end: 201905

REACTIONS (3)
  - Cerebrovascular accident [Unknown]
  - Intentional product misuse [Unknown]
  - Overdose [Unknown]

NARRATIVE: CASE EVENT DATE: 2009
